FAERS Safety Report 15479536 (Version 1)
Quarter: 2018Q4

REPORT INFORMATION
  Report Type: Not Available
  Country: US (occurrence: US)
  Receive Date: 20181009
  Receipt Date: 20181009
  Transmission Date: 20190205
  Serious: No
  Sender: FDA-Public Use
  Company Number: US-NEUROCRINE BIOSCIENCES INC.-2018NBI02808

PATIENT
  Age: 47 Year
  Sex: Female

DRUGS (13)
  1. MIRTAZAPINE. [Concomitant]
     Active Substance: MIRTAZAPINE
  2. TRAZODONE [Concomitant]
     Active Substance: TRAZODONE HYDROCHLORIDE
  3. CLONAZEPAM. [Concomitant]
     Active Substance: CLONAZEPAM
  4. BUDESONIDE. [Concomitant]
     Active Substance: BUDESONIDE
  5. DIVALPROEX [Concomitant]
     Active Substance: DIVALPROEX SODIUM
  6. FENOFIBRATE. [Concomitant]
     Active Substance: FENOFIBRATE
  7. LEVETIRACETAM. [Concomitant]
     Active Substance: LEVETIRACETAM
  8. OMEPRAZOLE. [Concomitant]
     Active Substance: OMEPRAZOLE
  9. QUETIAPINE. [Concomitant]
     Active Substance: QUETIAPINE
  10. LACTULOSE. [Concomitant]
     Active Substance: LACTULOSE
  11. INGREZZA [Suspect]
     Active Substance: VALBENAZINE
     Indication: TARDIVE DYSKINESIA
     Dosage: 2 X 40 MG
     Route: 048
     Dates: start: 20180623, end: 20180806
  12. FLUTICASONE. [Concomitant]
     Active Substance: FLUTICASONE
  13. POLYETHYLENE GLYCOL [Concomitant]
     Active Substance: POLYETHYLENE GLYCOLS

REACTIONS (2)
  - Feeling abnormal [Unknown]
  - Lethargy [Unknown]

NARRATIVE: CASE EVENT DATE: 2018
